FAERS Safety Report 11240962 (Version 5)
Quarter: 2015Q4

REPORT INFORMATION
  Report Type: Report from Study
  Country: US (occurrence: US)
  Receive Date: 20150706
  Receipt Date: 20151002
  Transmission Date: 20160304
  Serious: Yes (Other)
  Sender: FDA-Public Use
  Company Number: US-PFIZER INC-2015222804

PATIENT
  Age: 66 Year
  Sex: Female
  Weight: 70 kg

DRUGS (12)
  1. ULTRAM [Suspect]
     Active Substance: TRAMADOL HYDROCHLORIDE
     Indication: ARTHRITIS
     Dosage: 50 MG, PRN
     Route: 048
     Dates: start: 2004, end: 20150423
  2. ALLEGRA-D [Concomitant]
     Active Substance: FEXOFENADINE\PSEUDOEPHEDRINE
     Indication: SEASONAL ALLERGY
     Dosage: 180 MG, PRN
     Route: 048
     Dates: start: 2013
  3. METFORMIN [Concomitant]
     Active Substance: METFORMIN HYDROCHLORIDE
     Indication: DIABETES MELLITUS
     Dosage: 500 MG, DAILY
     Route: 048
     Dates: start: 20150330
  4. HYDROCODONE [Suspect]
     Active Substance: HYDROCODONE
     Indication: ARTHRITIS
     Dosage: PRN
     Route: 048
     Dates: start: 1994, end: 20150423
  5. NEXIUM [Concomitant]
     Active Substance: ESOMEPRAZOLE MAGNESIUM
     Indication: PROPHYLAXIS
     Dosage: UNK, 1X/DAY
     Route: 048
  6. FLUTICASONE PROPIONATE. [Concomitant]
     Active Substance: FLUTICASONE PROPIONATE
     Indication: SEASONAL ALLERGY
     Dosage: 500 MCG, PRN
     Route: 045
     Dates: start: 2014
  7. ALEVE [Concomitant]
     Active Substance: NAPROXEN SODIUM
     Indication: ARTHRITIS
     Dosage: 400 MG, PRN
     Route: 048
     Dates: start: 2014
  8. SYNTHROID [Concomitant]
     Active Substance: LEVOTHYROXINE SODIUM
     Indication: HYPOTHYROIDISM
     Dosage: 0.125 MCG, DAILY
     Route: 048
     Dates: start: 20150330
  9. XOLAIR [Concomitant]
     Active Substance: OMALIZUMAB
     Indication: HYPERSENSITIVITY
     Dosage: UNK
     Dates: start: 201503
  10. XANAX [Suspect]
     Active Substance: ALPRAZOLAM
     Indication: ANXIETY
     Dosage: 2 MG, DAILY
     Route: 048
     Dates: start: 2013
  11. ZOLOFT [Concomitant]
     Active Substance: SERTRALINE HYDROCHLORIDE
     Indication: DEPRESSION
     Dosage: 200 MG, DAILY
     Route: 048
     Dates: start: 1986
  12. FORMOTEROL [Concomitant]
     Active Substance: FORMOTEROL
     Indication: ASTHMA
     Dosage: 12.5 MCG, DAILY
     Route: 055
     Dates: start: 2013

REACTIONS (1)
  - Fall [Recovered/Resolved]

NARRATIVE: CASE EVENT DATE: 20150421
